FAERS Safety Report 15645624 (Version 8)
Quarter: 2020Q2

REPORT INFORMATION
  Report Type: Spontaneous
  Country: US (occurrence: US)
  Receive Date: 20181121
  Receipt Date: 20200626
  Transmission Date: 20200713
  Serious: Yes (Other)
  Sender: FDA-Public Use
  Company Number: US-PFIZER INC-2017424523

PATIENT
  Age: 61 Year
  Sex: Female

DRUGS (7)
  1. EFFEXOR XR [Suspect]
     Active Substance: VENLAFAXINE HYDROCHLORIDE
     Dosage: 450 MG, DAILY
  2. EFFEXOR XR [Suspect]
     Active Substance: VENLAFAXINE HYDROCHLORIDE
     Dosage: 300 MG, DAILY (150 MG CAPSULE / QTY 90 / DAY SUPPLY 45)
  3. EFFEXOR XR [Suspect]
     Active Substance: VENLAFAXINE HYDROCHLORIDE
     Indication: RHEUMATOID ARTHRITIS
     Dosage: 450 MG, DAILY
  4. EFFEXOR XR [Suspect]
     Active Substance: VENLAFAXINE HYDROCHLORIDE
     Dosage: 150 MG, DAILY
  5. EFFEXOR XR [Suspect]
     Active Substance: VENLAFAXINE HYDROCHLORIDE
     Dosage: 300 MG, DAILY (150 MG CAPSULE, QUANTITY 180, DAY SUPPLY 90)
  6. EFFEXOR XR [Suspect]
     Active Substance: VENLAFAXINE HYDROCHLORIDE
     Indication: DEPRESSION
     Dosage: 300 MG, DAILY
  7. EFFEXOR XR [Suspect]
     Active Substance: VENLAFAXINE HYDROCHLORIDE
     Indication: INTERVERTEBRAL DISC DEGENERATION
     Dosage: 300 MG, DAILY

REACTIONS (14)
  - Drug dependence [Unknown]
  - Nausea [Unknown]
  - Dizziness [Unknown]
  - Feeling hot [Unknown]
  - Withdrawal syndrome [Unknown]
  - Nervousness [Unknown]
  - Asthenia [Unknown]
  - Dyspepsia [Unknown]
  - Intentional product use issue [Unknown]
  - Myelopathy [Unknown]
  - Hyperhidrosis [Unknown]
  - Product dose omission [Unknown]
  - Prescribed overdose [Unknown]
  - Malaise [Unknown]
